FAERS Safety Report 6671573-3 (Version None)
Quarter: 2010Q2

REPORT INFORMATION
  Report Type: 
  Country: None (occurrence: None)
  Receive Date: 20100407
  Receipt Date: 20100330
  Transmission Date: 20101027
  Serious: Yes (Death, Other)
  Sender: FDA-Public Use
  Company Number: US-AMGEN-QUU402781

PATIENT
  Sex: Female

DRUGS (3)
  1. NPLATE [Suspect]
     Indication: IDIOPATHIC THROMBOCYTOPENIC PURPURA
     Dates: start: 20090429, end: 20091231
  2. CORTICOSTEROIDS [Concomitant]
     Dates: start: 20080722
  3. PREDNISONE TAB [Concomitant]
     Dates: start: 20090407

REACTIONS (2)
  - DEATH [None]
  - THERAPEUTIC RESPONSE DECREASED [None]
